FAERS Safety Report 15067026 (Version 18)
Quarter: 2022Q2

REPORT INFORMATION
  Report Type: Report from Study
  Country: CA (occurrence: CA)
  Receive Date: 20180626
  Receipt Date: 20220406
  Transmission Date: 20220721
  Serious: Yes (Hospitalization, Other)
  Sender: FDA-Public Use
  Company Number: PHHY2017CA030151

PATIENT
  Age: 70 Year
  Sex: Female

DRUGS (8)
  1. SANDOSTATIN LAR DEPOT [Suspect]
     Active Substance: OCTREOTIDE ACETATE
     Indication: Neuroendocrine tumour
     Dosage: 30 MG, QMO (EVERY 4 WEEKS)
     Route: 030
     Dates: start: 20160712
  2. SANDOSTATIN LAR DEPOT [Suspect]
     Active Substance: OCTREOTIDE ACETATE
     Indication: Carcinoid syndrome
     Dosage: 30 MG, EVERY 4 WEEKS
     Route: 030
     Dates: start: 20190307, end: 20220210
  3. SANDOSTATIN LAR DEPOT [Suspect]
     Active Substance: OCTREOTIDE ACETATE
  4. VARENICLINE TARTRATE [Concomitant]
     Active Substance: VARENICLINE TARTRATE
     Indication: Smoking cessation therapy
     Dosage: UNK
     Route: 065
     Dates: start: 20181107
  5. LASIX [Concomitant]
     Active Substance: FUROSEMIDE
     Indication: Product used for unknown indication
     Dosage: 20 MG, QD, (Q AM)
     Route: 065
  6. LASIX [Concomitant]
     Active Substance: FUROSEMIDE
     Dosage: 40 MG, QD
     Route: 065
  7. PERINDOPRIL [Concomitant]
     Active Substance: PERINDOPRIL
     Indication: Product used for unknown indication
     Dosage: 8 MG, QD
     Route: 065
  8. SUNITINIB [Concomitant]
     Active Substance: SUNITINIB
     Indication: Neoplasm malignant
     Dosage: UNK, TID
     Route: 065

REACTIONS (23)
  - Renal failure [Unknown]
  - Abdominal pain [Unknown]
  - Kidney infection [Recovered/Resolved]
  - Diabetes mellitus [Unknown]
  - Blood glucose increased [Unknown]
  - Blood pressure increased [Unknown]
  - Metastases to spine [Unknown]
  - Cholelithiasis [Recovered/Resolved]
  - Corneal disorder [Unknown]
  - Vision blurred [Unknown]
  - Visual impairment [Unknown]
  - Eye irritation [Unknown]
  - Weight increased [Unknown]
  - Hypertension [Unknown]
  - Urinary tract infection [Unknown]
  - Peripheral swelling [Recovering/Resolving]
  - Joint swelling [Unknown]
  - Bone lesion [Unknown]
  - Hepatic lesion [Unknown]
  - Headache [Unknown]
  - Flatulence [Recovering/Resolving]
  - Nausea [Unknown]
  - Platelet count decreased [Unknown]

NARRATIVE: CASE EVENT DATE: 20170601
